FAERS Safety Report 15631538 (Version 8)
Quarter: 2019Q2

REPORT INFORMATION
  Report Type: Report from Study
  Country: US (occurrence: US)
  Receive Date: 20181119
  Receipt Date: 20190619
  Transmission Date: 20190711
  Serious: Yes (Other)
  Sender: FDA-Public Use
  Company Number: US-TESARO, INC-US-2018TSO04194

PATIENT
  Age: 70 Year
  Sex: Female

DRUGS (3)
  1. ZEJULA [Suspect]
     Active Substance: NIRAPARIB
     Dosage: 200 MG, EVERY AFTERNOON
     Dates: start: 20190119
  2. ZEJULA [Suspect]
     Active Substance: NIRAPARIB
     Indication: OVARIAN CANCER
     Dosage: 200 MG, HS WITHOUT FOOD
     Route: 048
     Dates: start: 20180810, end: 20181022
  3. ZEJULA [Suspect]
     Active Substance: NIRAPARIB
     Dosage: 100 MG, EVERY AFTERNOON
     Dates: start: 20181214, end: 20190114

REACTIONS (19)
  - Abdominal discomfort [Unknown]
  - Insomnia [Unknown]
  - Dyspnoea [Not Recovered/Not Resolved]
  - Urinary tract infection [Not Recovered/Not Resolved]
  - Hypertension [Unknown]
  - Fatigue [Unknown]
  - Energy increased [Unknown]
  - Malaise [Recovered/Resolved]
  - Nausea [Recovered/Resolved]
  - Palpitations [Not Recovered/Not Resolved]
  - Respiratory tract infection viral [Unknown]
  - Cough [Not Recovered/Not Resolved]
  - Autoimmune disorder [Unknown]
  - Gastrointestinal disorder [Recovered/Resolved]
  - Tachycardia [Recovered/Resolved]
  - Pneumonia [Recovered/Resolved]
  - Pulmonary fibrosis [Unknown]
  - Pain [Unknown]
  - Weight decreased [Unknown]

NARRATIVE: CASE EVENT DATE: 201810
